FAERS Safety Report 7121939-2 (Version None)
Quarter: 2010Q4

REPORT INFORMATION
  Report Type: 
  Country: None (occurrence: None)
  Receive Date: 20101124
  Receipt Date: 20101116
  Transmission Date: 20110411
  Serious: Yes (Congenital Anomaly)
  Sender: FDA-Public Use
  Company Number: A0679353A

PATIENT
  Sex: Male
  Weight: 3.8 kg

DRUGS (13)
  1. PAXIL CR [Suspect]
     Indication: DEPRESSION
     Dosage: 37.5MG UNKNOWN
  2. PRENATAL VITAMINS [Concomitant]
  3. ALBUTEROL [Concomitant]
  4. ADVAIR [Concomitant]
  5. PHENERGAN [Concomitant]
     Dates: start: 20030425
  6. DEMEROL [Concomitant]
     Dates: start: 20030425
  7. GENTAMICIN [Concomitant]
     Indication: PYELONEPHRITIS
  8. ANCEF [Concomitant]
     Indication: PYELONEPHRITIS
  9. MACROBID [Concomitant]
  10. SINGULAIR [Concomitant]
  11. PULMICORT [Concomitant]
  12. RANITIDINE [Concomitant]
  13. AMOXICILLIN [Concomitant]

REACTIONS (5)
  - ATRIAL SEPTAL DEFECT [None]
  - CONGENITAL ANOMALY [None]
  - DRUG EXPOSURE DURING PREGNANCY [None]
  - MULTIPLE CONGENITAL ABNORMALITIES [None]
  - VENTRICULAR SEPTAL DEFECT [None]
